FAERS Safety Report 4606044-9 (Version None)
Quarter: 2005Q1

REPORT INFORMATION
  Report Type: 
  Country: None (occurrence: None)
  Receive Date: 20050311
  Receipt Date: 20050301
  Transmission Date: 20050727
  Serious: Yes (Hospitalization)
  Sender: FDA-Public Use
  Company Number: FR-ROCHE-397172

PATIENT
  Age: 3 Year

DRUGS (4)
  1. HIVID [Suspect]
     Indication: HIV INFECTION
     Dates: start: 20020429, end: 20020704
  2. RETROVIR [Suspect]
     Indication: HIV INFECTION
  3. VIREAD [Suspect]
     Indication: HIV INFECTION
     Dates: start: 20020429, end: 20020704
  4. KALETRA [Suspect]
     Indication: HIV INFECTION
     Dates: start: 20020429, end: 20020704

REACTIONS (5)
  - CAESAREAN SECTION [None]
  - CONGENITAL NEUROLOGICAL DISORDER [None]
  - DEVELOPMENTAL DELAY [None]
  - DRUG EXPOSURE DURING PREGNANCY [None]
  - MENTAL RETARDATION SEVERITY UNSPECIFIED [None]
